FAERS Safety Report 5184426-7 (Version None)
Quarter: 2006Q4

REPORT INFORMATION
  Report Type: 
  Country: None (occurrence: None)
  Receive Date: 20061220
  Receipt Date: 20060407
  Transmission Date: 20070319
  Serious: No
  Sender: FDA-Public Use
  Company Number: US-GLAXOSMITHKLINE-A0600869A

PATIENT
  Age: 54 Year
  Sex: Female

DRUGS (15)
  1. NICODERM CQ [Suspect]
     Dates: start: 20060402
  2. XANAX [Concomitant]
  3. AMBIEN [Concomitant]
  4. LEXAPRO [Concomitant]
  5. ALBUTEROL [Concomitant]
  6. ATROVENT [Concomitant]
  7. FLOVENT [Concomitant]
  8. SINGULAIR [Concomitant]
  9. WELLBUTRIN [Concomitant]
  10. PREVACID [Concomitant]
  11. ACTONEL [Concomitant]
  12. HYDROCODONE BITARTRATE [Concomitant]
  13. FENTANYL [Concomitant]
  14. FLONASE [Concomitant]
  15. FORADIL [Concomitant]

REACTIONS (6)
  - ABDOMINAL PAIN UPPER [None]
  - FATIGUE [None]
  - IRRITABILITY [None]
  - NERVOUSNESS [None]
  - NICOTINE DEPENDENCE [None]
  - PANIC ATTACK [None]
